FAERS Safety Report 7814226-8 (Version None)
Quarter: 2011Q4

REPORT INFORMATION
  Report Type: 
  Country: None (occurrence: None)
  Receive Date: 20111014
  Receipt Date: 20110930
  Transmission Date: 20120403
  Serious: Yes (Other)
  Sender: FDA-Public Use
  Company Number: CA-JNJFOC-20110805170

PATIENT
  Age: 39 Year
  Sex: Male
  Weight: 90.72 kg

DRUGS (6)
  1. EFFEXOR [Concomitant]
     Indication: DEPRESSION
  2. EXTRA STRENGTH TYLENOL [Suspect]
     Indication: ARTHRALGIA
     Route: 048
  3. EXTRA STRENGTH TYLENOL [Suspect]
     Indication: ABDOMINAL PAIN UPPER
     Route: 048
  4. EXTRA STRENGTH TYLENOL [Suspect]
     Indication: BACK PAIN
     Route: 048
  5. VENTOLIN [Concomitant]
     Indication: ASTHMA
  6. CIMETIDINE [Concomitant]
     Indication: GASTROOESOPHAGEAL REFLUX DISEASE

REACTIONS (2)
  - PRODUCT QUALITY ISSUE [None]
  - HEPATIC FAILURE [None]
